FAERS Safety Report 9524759 (Version 1)
Quarter: 2013Q1

REPORT INFORMATION
  Report Type: Spontaneous
  Country: US (occurrence: None)
  Receive Date: 20130305
  Receipt Date: 20130305
  Transmission Date: 20140127
  Serious: Yes (Other)
  Sender: FDA-Public Use
  Company Number: 163-21880-12021935

PATIENT
  Age: 58 Year
  Sex: Female
  Weight: 76.6 kg

DRUGS (7)
  1. REVLIMID (LENALIDOMIDE) (15 MILLIGRAM, CAPSULES) [Suspect]
     Indication: PLASMA CELL MYELOMA
     Route: 048
     Dates: start: 20120119
  2. ASPIRIN (ACETYLSALICYLIC ACID) [Concomitant]
  3. VALACYCLOVIR (VALACICLOVIR) [Concomitant]
  4. POTASSIUM CHLORIDE [Concomitant]
  5. CALCIUM CARBONATE [Concomitant]
  6. OMEPRAZOLE [Concomitant]
  7. TENORETIC [Concomitant]

REACTIONS (2)
  - Neutrophil count decreased [None]
  - White blood cell count decreased [None]
